FAERS Safety Report 6301287-0 (Version None)
Quarter: 2009Q3

REPORT INFORMATION
  Report Type: 
  Country: None (occurrence: None)
  Receive Date: 20090807
  Receipt Date: 20090730
  Transmission Date: 20100115
  Serious: Yes (Disabling)
  Sender: FDA-Public Use
  Company Number: JP-ASTRAZENECA-2009SE05060

PATIENT
  Age: 72 Year
  Sex: Female
  Weight: 53 kg

DRUGS (8)
  1. OMEPRAL [Suspect]
     Indication: REFLUX OESOPHAGITIS
     Route: 048
     Dates: start: 20080219, end: 20090706
  2. OMEPRAL [Suspect]
     Route: 048
     Dates: start: 20090707, end: 20090709
  3. MEDIPEACE [Suspect]
     Indication: INSOMNIA
     Route: 048
     Dates: start: 20030501, end: 20090709
  4. ADALAT CC [Suspect]
     Indication: HYPERTENSION
     Route: 048
     Dates: start: 20030501, end: 20090605
  5. MOBIC [Suspect]
     Indication: BACK PAIN
     Route: 048
     Dates: start: 20060101, end: 20090616
  6. FOSAMAC [Suspect]
     Indication: OSTEOPOROSIS
     Route: 048
     Dates: start: 20080206, end: 20090709
  7. TOWARAT-CR [Suspect]
     Indication: HYPERTENSION
     Route: 048
     Dates: start: 20090606, end: 20090628
  8. MELOXICAM [Suspect]
     Indication: BACK PAIN
     Route: 048
     Dates: start: 20090617, end: 20090628

REACTIONS (1)
  - INTERSTITIAL LUNG DISEASE [None]
